FAERS Safety Report 11833798 (Version 4)
Quarter: 2016Q1

REPORT INFORMATION
  Report Type: Spontaneous
  Country: IE (occurrence: IE)
  Receive Date: 20151214
  Receipt Date: 20160126
  Transmission Date: 20160525
  Serious: Yes (Hospitalization, Other)
  Sender: FDA-Public Use
  Company Number: IE-TAKEDA-2015MPI008411

PATIENT
  Age: 72 Year
  Sex: Male
  Weight: 90.6 kg

DRUGS (8)
  1. ASPIRIN                            /00002701/ [Concomitant]
     Active Substance: ASPIRIN
     Dosage: 75 MG, UNK
     Route: 048
  2. JENTADUETO [Concomitant]
     Active Substance: LINAGLIPTIN\METFORMIN HYDROCHLORIDE
     Dosage: UNK
     Route: 048
  3. BUMETANIDE. [Concomitant]
     Active Substance: BUMETANIDE
     Dosage: 1 MG, UNK
     Route: 048
  4. CRETOR [Concomitant]
     Dosage: 10 MG, UNK
     Route: 065
  5. TAMSULOSIN [Concomitant]
     Active Substance: TAMSULOSIN
     Dosage: 100 MG, UNK
     Route: 065
  6. VELCADE [Suspect]
     Active Substance: BORTEZOMIB
     Indication: MANTLE CELL LYMPHOMA
     Dosage: UNK
     Route: 065
     Dates: start: 20151103, end: 20151113
  7. ELTROXIN [Concomitant]
     Active Substance: LEVOTHYROXINE
     Dosage: 150 MG, UNK
     Route: 048
  8. CLOPIDOGREL [Concomitant]
     Active Substance: CLOPIDOGREL BISULFATE
     Dosage: 75 MG, UNK
     Route: 048

REACTIONS (2)
  - Chylothorax [Recovered/Resolved]
  - Lower respiratory tract infection [Unknown]

NARRATIVE: CASE EVENT DATE: 201511
